FAERS Safety Report 8152302-3 (Version None)
Quarter: 2012Q1

REPORT INFORMATION
  Report Type: 
  Country: None (occurrence: None)
  Receive Date: 20120221
  Receipt Date: 20120210
  Transmission Date: 20120608
  Serious: Yes (Hospitalization, Other)
  Sender: FDA-Public Use
  Company Number: BR-SANOFI-AVENTIS-2012SA009259

PATIENT
  Age: 86 Year
  Sex: Female

DRUGS (3)
  1. LANTUS [Suspect]
     Route: 058
     Dates: start: 20100101, end: 20120101
  2. SOLOSTAR [Suspect]
     Indication: DEVICE THERAPY
     Dates: start: 20120101
  3. LANTUS [Suspect]
     Route: 058
     Dates: start: 20120101

REACTIONS (4)
  - ARRHYTHMIA [None]
  - URINARY TRACT INFECTION [None]
  - HYPOGLYCAEMIA [None]
  - HYPERHIDROSIS [None]
